FAERS Safety Report 13515721 (Version 1)
Quarter: 2017Q2

REPORT INFORMATION
  Report Type: Spontaneous
  Country: RU (occurrence: RU)
  Receive Date: 20170504
  Receipt Date: 20170504
  Transmission Date: 20170830
  Serious: Yes (Other)
  Sender: FDA-Public Use
  Company Number: RU-ASTRAZENECA-2017SE45710

PATIENT
  Age: 53 Year
  Sex: Male
  Weight: 70 kg

DRUGS (3)
  1. BRILINTA [Suspect]
     Active Substance: TICAGRELOR
     Indication: ANGINA UNSTABLE
     Route: 048
     Dates: start: 201607
  2. ATORIS [Concomitant]
     Active Substance: ATORVASTATIN CALCIUM
  3. THROMBO ASS [Concomitant]
     Active Substance: ASPIRIN

REACTIONS (5)
  - Weight decreased [Unknown]
  - Dyspnoea [Unknown]
  - Chest pain [Unknown]
  - Condition aggravated [Unknown]
  - Tachycardia [Unknown]

NARRATIVE: CASE EVENT DATE: 201603
